FAERS Safety Report 9725256 (Version 1)
Quarter: 2013Q4

REPORT INFORMATION
  Report Type: Spontaneous
  Country: US (occurrence: None)
  Receive Date: 20131202
  Receipt Date: 20131202
  Transmission Date: 20140711
  Serious: No
  Sender: FDA-Public Use
  Company Number: None

PATIENT
  Age: 37 Year
  Sex: Female

DRUGS (2)
  1. OXYCODONE [Suspect]
     Indication: FIBROMYALGIA
     Dosage: 1 THREE TIMES DAILY TAKEN BY MOUTH
     Route: 048
  2. OXYCODONE [Suspect]
     Indication: SCOLIOSIS
     Dosage: 1 THREE TIMES DAILY TAKEN BY MOUTH
     Route: 048

REACTIONS (2)
  - Withdrawal syndrome [None]
  - Pain [None]
